FAERS Safety Report 24332167 (Version 1)
Quarter: 2024Q3

REPORT INFORMATION
  Report Type: Report from Study
  Country: US (occurrence: US)
  Receive Date: 20240918
  Receipt Date: 20240918
  Transmission Date: 20241017
  Serious: Yes (Hospitalization)
  Sender: ROCHE
  Company Number: US-ROCHE-10000079865

PATIENT
  Age: 56 Year
  Sex: Female

DRUGS (13)
  1. OCRELIZUMAB [Suspect]
     Active Substance: OCRELIZUMAB
     Indication: Multiple sclerosis
     Route: 065
     Dates: start: 20210205
  2. OCRELIZUMAB [Suspect]
     Active Substance: OCRELIZUMAB
     Route: 065
     Dates: start: 20210219
  3. OCRELIZUMAB [Suspect]
     Active Substance: OCRELIZUMAB
     Route: 065
     Dates: start: 20210706
  4. OCRELIZUMAB [Suspect]
     Active Substance: OCRELIZUMAB
     Route: 065
     Dates: start: 20211223
  5. OCRELIZUMAB [Suspect]
     Active Substance: OCRELIZUMAB
     Route: 065
     Dates: start: 20220613
  6. OCRELIZUMAB [Suspect]
     Active Substance: OCRELIZUMAB
     Route: 065
     Dates: start: 20221128
  7. OCRELIZUMAB [Suspect]
     Active Substance: OCRELIZUMAB
     Route: 065
     Dates: start: 20230515
  8. VITAMIN B12 [Concomitant]
     Active Substance: CYANOCOBALAMIN
  9. ASPIRIN [Concomitant]
     Active Substance: ASPIRIN
     Indication: Multiple sclerosis
     Dates: start: 20200108
  10. SUMATRIPTAN [Concomitant]
     Active Substance: SUMATRIPTAN\SUMATRIPTAN SUCCINATE
     Dates: start: 20210201
  11. DIPHENHYDRAMINE [Concomitant]
     Active Substance: DIPHENHYDRAMINE
  12. FAMOTIDINE [Concomitant]
     Active Substance: FAMOTIDINE
  13. CODEINE [Concomitant]
     Active Substance: CODEINE

REACTIONS (3)
  - Hypoxia [Recovered/Resolved]
  - Respiratory failure [Recovered/Resolved]
  - Pneumonia [Recovered/Resolved]

NARRATIVE: CASE EVENT DATE: 20240818
